FAERS Safety Report 17482699 (Version 4)
Quarter: 2020Q2

REPORT INFORMATION
  Report Type: Report from Study
  Country: US (occurrence: US)
  Receive Date: 20200302
  Receipt Date: 20200512
  Transmission Date: 20200713
  Serious: No
  Sender: FDA-Public Use
  Company Number: NVSC2020US058757

PATIENT
  Age: 65 Year
  Sex: Male

DRUGS (2)
  1. BEOVU [Suspect]
     Active Substance: BROLUCIZUMAB-DBLL
     Indication: AGE-RELATED MACULAR DEGENERATION
     Dosage: UNK(VIAL)
     Route: 047
     Dates: start: 20200226
  2. BEOVU [Suspect]
     Active Substance: BROLUCIZUMAB-DBLL
     Route: 047

REACTIONS (2)
  - Drug ineffective [Unknown]
  - Eye inflammation [Unknown]

NARRATIVE: CASE EVENT DATE: 20200226
